FAERS Safety Report 9962583 (Version 1)
Quarter: 2014Q1

REPORT INFORMATION
  Report Type: Report from Study
  Country: US (occurrence: US)
  Receive Date: 20140305
  Receipt Date: 20140305
  Transmission Date: 20141002
  Serious: No
  Sender: FDA-Public Use
  Company Number: US-ABBVIE-13P-163-1112419-00

PATIENT
  Age: 52 Year
  Sex: Female

DRUGS (6)
  1. HUMIRA [Suspect]
     Indication: CROHN^S DISEASE
     Dates: start: 20130514
  2. LEXAPRO [Concomitant]
     Indication: PRODUCT USED FOR UNKNOWN INDICATION
     Dosage: IN AM
  3. AMITRIPTYLINE [Concomitant]
     Indication: PRODUCT USED FOR UNKNOWN INDICATION
     Dosage: IN PM
  4. CALCITRATE [Concomitant]
     Indication: PRODUCT USED FOR UNKNOWN INDICATION
  5. B COMPLEX [Concomitant]
     Indication: PRODUCT USED FOR UNKNOWN INDICATION
  6. VITAMIN C [Concomitant]
     Indication: PRODUCT USED FOR UNKNOWN INDICATION

REACTIONS (4)
  - Musculoskeletal stiffness [Not Recovered/Not Resolved]
  - Musculoskeletal stiffness [Not Recovered/Not Resolved]
  - Fatigue [Recovering/Resolving]
  - Headache [Recovering/Resolving]
